FAERS Safety Report 5852640-0 (Version None)
Quarter: 2008Q3

REPORT INFORMATION
  Report Type: 
  Country: None (occurrence: None)
  Receive Date: 20080821
  Receipt Date: 20080814
  Transmission Date: 20090109
  Serious: Yes (Life-Threatening, Hospitalization)
  Sender: FDA-Public Use
  Company Number: B0529411A

PATIENT
  Age: 87 Year
  Sex: Male
  Weight: 86 kg

DRUGS (1)
  1. ARIXTRA [Suspect]
     Indication: PHLEBITIS
     Dosage: 7.5MG PER DAY
     Route: 058
     Dates: start: 20080530, end: 20080607

REACTIONS (3)
  - SHOCK HAEMORRHAGIC [None]
  - SKIN DISORDER [None]
  - VARICOSE VEIN RUPTURED [None]
